FAERS Safety Report 10207180 (Version 1)
Quarter: 2014Q2

REPORT INFORMATION
  Report Type: Spontaneous
  Country: US (occurrence: US)
  Receive Date: 20140530
  Receipt Date: 20140530
  Transmission Date: 20141212
  Serious: No
  Sender: FDA-Public Use
  Company Number: US-BAYER-2014-077338

PATIENT
  Sex: Female

DRUGS (4)
  1. BETASERON [Suspect]
     Dosage: UNK
  2. AVONEX [Suspect]
     Dosage: UNK
  3. COPAXONE [Suspect]
     Dosage: UNK
  4. TECFIDERA [Suspect]
     Dosage: UNK

REACTIONS (2)
  - Feeling abnormal [None]
  - Drug ineffective [None]
